FAERS Safety Report 17447631 (Version 12)
Quarter: 2025Q3

REPORT INFORMATION
  Report Type: Report from Study
  Country: US (occurrence: US)
  Receive Date: 20200221
  Receipt Date: 20250825
  Transmission Date: 20251020
  Serious: Yes (Hospitalization, Other)
  Sender: TAKEDA
  Company Number: US-SHIRE-US202006854

PATIENT
  Age: 72 Year
  Sex: Female
  Weight: 70 kg

DRUGS (26)
  1. HUMAN IMMUNOGLOBULIN G [Suspect]
     Active Substance: HUMAN IMMUNOGLOBULIN G
     Indication: Combined immunodeficiency
     Dosage: 90 GRAM, Q4WEEKS
     Dates: start: 20050921
  2. HUMAN IMMUNOGLOBULIN G [Suspect]
     Active Substance: HUMAN IMMUNOGLOBULIN G
     Indication: Asthma-chronic obstructive pulmonary disease overlap syndrome
     Dosage: 90 GRAM, Q4WEEKS
  3. HUMAN IMMUNOGLOBULIN G [Suspect]
     Active Substance: HUMAN IMMUNOGLOBULIN G
     Indication: Rhinitis allergic
     Dosage: 90 GRAM, Q4WEEKS
  4. HUMAN IMMUNOGLOBULIN G [Suspect]
     Active Substance: HUMAN IMMUNOGLOBULIN G
     Indication: Activated PI3 kinase delta syndrome
  5. ACETAMINOPHEN [Concomitant]
     Active Substance: ACETAMINOPHEN
  6. EPINEPHRINE [Concomitant]
     Active Substance: EPINEPHRINE
  7. SODIUM CHLORIDE [Concomitant]
     Active Substance: SODIUM CHLORIDE
  8. CYMBALTA [Concomitant]
     Active Substance: DULOXETINE HYDROCHLORIDE
  9. FLUTICASONE PROPIONATE [Concomitant]
     Active Substance: FLUTICASONE PROPIONATE
  10. DILTIAZEM [Concomitant]
     Active Substance: DILTIAZEM
  11. FLUTICASONE [Concomitant]
     Active Substance: FLUTICASONE
  12. FENOFIBRATE [Concomitant]
     Active Substance: FENOFIBRATE
  13. ONDANSETRON [Concomitant]
     Active Substance: ONDANSETRON
  14. COREG CR [Concomitant]
     Active Substance: CARVEDILOL PHOSPHATE
  15. SODIUM CHLORIDE [Concomitant]
     Active Substance: SODIUM CHLORIDE
  16. ALBUTEROL SULFATE [Concomitant]
     Active Substance: ALBUTEROL SULFATE
  17. LIPITOR [Concomitant]
     Active Substance: ATORVASTATIN CALCIUM
  18. AUGMENTIN [Concomitant]
     Active Substance: AMOXICILLIN\CLAVULANATE POTASSIUM
  19. DIPHENHYDRAMINE [Concomitant]
     Active Substance: DIPHENHYDRAMINE
  20. LUNESTA [Concomitant]
     Active Substance: ESZOPICLONE
  21. SYMBICORT [Concomitant]
     Active Substance: BUDESONIDE\FORMOTEROL FUMARATE DIHYDRATE
  22. Lmx [Concomitant]
  23. DIOVAN [Concomitant]
     Active Substance: VALSARTAN
  24. FLONASE [Concomitant]
     Active Substance: FLUTICASONE PROPIONATE
  25. VENTOLIN [Concomitant]
     Active Substance: ALBUTEROL SULFATE
  26. DIPHENHYDRAMINE HYDROCHLORIDE [Concomitant]
     Active Substance: DIPHENHYDRAMINE HYDROCHLORIDE

REACTIONS (9)
  - Pneumonia [Unknown]
  - Diverticulitis [Unknown]
  - Infection [Unknown]
  - Bronchitis [Unknown]
  - Product use in unapproved indication [Unknown]
  - Fall [Unknown]
  - Lower limb fracture [Unknown]
  - Influenza [Unknown]
  - Blood pressure increased [Unknown]

NARRATIVE: CASE EVENT DATE: 20221128
